FAERS Safety Report 21693265 (Version 3)
Quarter: 2023Q1

REPORT INFORMATION
  Report Type: Spontaneous
  Country: IT (occurrence: IT)
  Receive Date: 20221207
  Receipt Date: 20230102
  Transmission Date: 20230417
  Serious: Yes (Hospitalization, Other)
  Sender: FDA-Public Use
  Company Number: IT-Accord-288210

PATIENT
  Age: 73 Year
  Sex: Female
  Weight: 68 kg

DRUGS (12)
  1. APIXABAN [Suspect]
     Active Substance: APIXABAN
     Route: 048
  2. CAPECITABINE [Interacting]
     Active Substance: CAPECITABINE
     Indication: Adenocarcinoma of colon
     Dosage: 1000 MG/M2, TWICE DAILY) FROM DAY 1 TO 14, EVERY THREE WEEKS, ASSUMED 3000 MG OF CAPECITABINE DAILY
     Route: 048
  3. EZETIMIBE [Suspect]
     Active Substance: EZETIMIBE
     Route: 048
  4. OXALIPLATIN [Suspect]
     Active Substance: OXALIPLATIN
     Indication: Adenocarcinoma of colon
     Dosage: 130 MG/M2 ON DAY ONE, ASSUMED 195 MG OF OXALIPLATIN, EVERY 3 WEEKS
  5. VITAMINS [Interacting]
     Active Substance: VITAMINS
     Route: 048
  6. ACEROLA [Interacting]
     Active Substance: ACEROLA
     Route: 048
  7. INDAPAMIDE [Suspect]
     Active Substance: INDAPAMIDE
     Dosage: 2.5 MG/DAY
     Route: 048
  8. LOVASTATIN [Suspect]
     Active Substance: LOVASTATIN
     Dosage: 10 MG/DAY
     Route: 048
  9. VERAPAMIL [Suspect]
     Active Substance: VERAPAMIL HYDROCHLORIDE
     Dosage: 40 MG/DAY
     Route: 048
  10. FLECAINIDE [Suspect]
     Active Substance: FLECAINIDE
     Dosage: 100 MG/DAY
     Route: 048
  11. ESOMEPRAZOLE [Concomitant]
     Active Substance: ESOMEPRAZOLE
     Dosage: 20 MG/DAY
  12. VITAMINS [Interacting]
     Active Substance: VITAMINS
     Route: 048

REACTIONS (6)
  - Palmar-plantar erythrodysaesthesia syndrome [Recovered/Resolved]
  - Diarrhoea [Recovered/Resolved]
  - Nausea [Recovered/Resolved]
  - Paraesthesia [Recovered/Resolved]
  - Conjunctivitis [Recovered/Resolved]
  - Drug interaction [Unknown]
